FAERS Safety Report 6604060-9 (Version None)
Quarter: 2010Q1

REPORT INFORMATION
  Report Type: 
  Country: None (occurrence: None)
  Receive Date: 20100226
  Receipt Date: 20091016
  Transmission Date: 20100710
  Serious: Yes (Hospitalization, Other)
  Sender: FDA-Public Use
  Company Number: A0781561A

PATIENT
  Age: 44 Year
  Sex: Female
  Weight: 102.3 kg

DRUGS (4)
  1. LAMICTAL CD [Suspect]
     Indication: DRUG USE FOR UNKNOWN INDICATION
     Route: 048
     Dates: start: 20090316, end: 20090401
  2. AMBIEN [Concomitant]
     Route: 065
  3. TIZANIDINE HCL [Concomitant]
     Route: 065
  4. MAXALT [Concomitant]
     Route: 065

REACTIONS (3)
  - OROPHARYNGEAL PAIN [None]
  - RASH GENERALISED [None]
  - SWOLLEN TONGUE [None]
